FAERS Safety Report 5978689-5 (Version None)
Quarter: 2008Q4

REPORT INFORMATION
  Report Type: 
  Country: None (occurrence: None)
  Receive Date: 20081126
  Receipt Date: 20081120
  Transmission Date: 20090506
  Serious: Yes (Hospitalization)
  Sender: FDA-Public Use
  Company Number: 2008AL011905

PATIENT
  Age: 67 Year
  Sex: Male

DRUGS (1)
  1. DIGOXIN [Suspect]
     Indication: ENDOCARDITIS
     Dosage: 0.125MG, PO
     Route: 048
     Dates: start: 19870101, end: 20080501

REACTIONS (6)
  - ANOREXIA [None]
  - CARDIOMEGALY [None]
  - DIZZINESS [None]
  - DYSPNOEA [None]
  - LIVER DISORDER [None]
  - MEMORY IMPAIRMENT [None]
